FAERS Safety Report 14973703 (Version 1)
Quarter: 2018Q2

REPORT INFORMATION
  Report Type: Spontaneous
  Country: DK (occurrence: DK)
  Receive Date: 20180605
  Receipt Date: 20180605
  Transmission Date: 20180711
  Serious: Yes (Hospitalization)
  Sender: FDA-Public Use
  Company Number: DK-PFIZER INC-2018220042

PATIENT
  Age: 60 Year
  Sex: Male

DRUGS (13)
  1. BRIMONIDINE [Concomitant]
     Active Substance: BRIMONIDINE TARTRATE
     Indication: GLAUCOMA
     Dosage: 1 DROP, 2X/DAILY IN BOTH EYES
     Route: 050
     Dates: start: 20170207
  2. ACICLOVIR [Concomitant]
     Active Substance: ACYCLOVIR
     Indication: HERPES VIRUS INFECTION
     Dosage: 800 MG, 1X/DAY
     Route: 048
     Dates: start: 20171221
  3. PARACETAMOL [Concomitant]
     Active Substance: ACETAMINOPHEN
     Indication: PAIN
     Route: 048
  4. GLYCERYLNITRAT [Concomitant]
     Indication: ANGINA PECTORIS
     Dosage: STRENGTH: 0,4 MG/DOSIS. DOSE: 1 SPRAY AS NEEDED, MAX 1X/DAILY
     Route: 060
     Dates: start: 20171205
  5. GANFORT [Concomitant]
     Active Substance: BIMATOPROST\TIMOLOL
     Indication: GLAUCOMA
     Dosage: 1 DF, 1X/DAY (1 DROP IN THE BOTH EYES EVERY MORNING)
     Route: 050
     Dates: start: 20160119
  6. DORZOLAMIDE [Concomitant]
     Active Substance: DORZOLAMIDE
     Indication: GLAUCOMA
     Dosage: 1 DF, 3X/DAY IN EVERY EYE
     Route: 050
     Dates: start: 20170124
  7. ZOLEDRONIC ACID HOSPIRA [Suspect]
     Active Substance: ZOLEDRONIC ACID
     Indication: PLASMA CELL MYELOMA
     Route: 042
     Dates: start: 20161117
  8. EUCREAS [Concomitant]
     Active Substance: METFORMIN HYDROCHLORIDE\VILDAGLIPTIN
     Indication: DIABETES MELLITUS
     Dosage: 2 DF, 1X/DAY
     Route: 048
     Dates: start: 20160601
  9. AMOXICILLIN CLAVULANIC ACID [Concomitant]
     Active Substance: AMOXICILLIN\CLAVULANIC ACID
     Indication: INFECTION
     Dosage: 3 DF, 1X/DAY
     Route: 048
     Dates: start: 20180124
  10. ATORVASTATIN [Concomitant]
     Active Substance: ATORVASTATIN
     Indication: HYPERCHOLESTEROLAEMIA
     Dosage: 20 MG, 1X/DAY
     Route: 048
     Dates: start: 20161202
  11. NOVOMIX [Concomitant]
     Active Substance: INSULIN ASPART
     Indication: DIABETES MELLITUS
     Dosage: 8 IU, 1X/DAY
     Route: 058
     Dates: start: 20150610
  12. ACETYLSALICYLIC ACID [Concomitant]
     Active Substance: ASPIRIN
     Indication: THROMBOSIS PROPHYLAXIS
     Dosage: 75 MG, 1X/DAY
     Route: 048
     Dates: start: 20121219
  13. SILDENAFIL. [Concomitant]
     Active Substance: SILDENAFIL
     Indication: ERECTILE DYSFUNCTION
     Dosage: 50 MG, AS NEEDED. MAX 1X/DAILY
     Route: 048
     Dates: start: 20170209

REACTIONS (2)
  - Osteonecrosis of jaw [Unknown]
  - Exposed bone in jaw [Unknown]

NARRATIVE: CASE EVENT DATE: 20180314
